FAERS Safety Report 7712889-9 (Version None)
Quarter: 2011Q3

REPORT INFORMATION
  Report Type: 
  Country: None (occurrence: None)
  Receive Date: 20110826
  Receipt Date: 20110817
  Transmission Date: 20111222
  Serious: Yes (Hospitalization, Other)
  Sender: FDA-Public Use
  Company Number: PHEH2007US15453

PATIENT
  Sex: Male
  Weight: 61.678 kg

DRUGS (46)
  1. MELPHALAN [Concomitant]
     Dosage: 200 MG,
     Dates: start: 20050119
  2. DEXAMETHASONE [Concomitant]
  3. FUROSEMIDE [Concomitant]
  4. ZOMETA [Suspect]
     Dosage: 4 MG, UNK
     Route: 042
     Dates: start: 20060504
  5. ZANTAC [Concomitant]
  6. ACYCLOVIR [Concomitant]
     Dosage: 400 MG, BID
     Dates: end: 20051129
  7. MORPHINE SULFATE [Concomitant]
     Indication: PAIN
     Dosage: 10 MG,
     Dates: start: 20050126
  8. NAPROXEN [Concomitant]
     Dosage: 375 MG,
  9. WARFARIN SODIUM [Concomitant]
     Dosage: 7.5 MG,
  10. PEPCID [Concomitant]
  11. LOPERAMIDE HCL [Concomitant]
  12. OXYCODONE HCL AND ACETAMINOPHEN [Concomitant]
     Indication: PAIN
  13. FLUCONAZOLE [Concomitant]
     Dosage: 400 MG,
  14. CEFEPIME [Concomitant]
     Dosage: 2 G,
  15. CLINDAMYCIN HCL [Concomitant]
     Dosage: 150 MG,
     Route: 048
  16. MESNA [Concomitant]
     Dosage: 680 MG, UNK
     Route: 042
     Dates: start: 20041228
  17. BACTRIM [Concomitant]
     Dates: start: 20050101
  18. ACETAMINOPHEN [Concomitant]
  19. DARVOCET-N 50 [Concomitant]
  20. LISINOPRIL [Concomitant]
  21. NOVOLIN 70/30 [Concomitant]
  22. NOVOLOG [Concomitant]
  23. TRIMETOPRIM-SULFA ^GEA^ [Concomitant]
     Dates: start: 20060726, end: 20060826
  24. ARANESP [Concomitant]
     Dosage: 40 UG/ML,
     Route: 058
  25. OXYCODONE HCL [Concomitant]
  26. MECLIZINE [Concomitant]
  27. THALIDOMIDE [Concomitant]
     Dates: end: 20060101
  28. MORPHINE SULFATE [Concomitant]
     Dosage: 15 MG, PRN
  29. AVELOX [Concomitant]
  30. PERCOCET [Concomitant]
     Dates: start: 20051101
  31. ZOMETA [Suspect]
     Dosage: 3.5 MG, UNK
     Route: 042
     Dates: start: 20060411
  32. NIFEDIPINE [Concomitant]
  33. MS CONTIN [Concomitant]
     Dosage: 30 MG, BID
     Route: 048
  34. CYPROHEPTADINE HCL [Concomitant]
     Dosage: 4 MG,
     Dates: start: 20050822, end: 20060822
  35. ZOLPIDEM [Concomitant]
  36. FILGRASTIM [Concomitant]
  37. SIMAVASTATIN [Concomitant]
  38. RANITIDINE [Concomitant]
  39. AMLODIPINE [Concomitant]
  40. REVLIMID [Concomitant]
  41. ZOMETA [Suspect]
     Dosage: 3.3 MG, QMO
     Dates: start: 20050419
  42. DECADRON [Concomitant]
     Dates: start: 20040601, end: 20060701
  43. NEUPOGEN [Concomitant]
     Dosage: 300 UG, UNK
     Dates: start: 20030101, end: 20050112
  44. CYCLOPHOSPHAMIDE [Concomitant]
     Dosage: 6800 MG, UNK
     Route: 042
  45. CHLORHEXIDINE GLUCONATE [Concomitant]
  46. LEVAQUIN [Concomitant]

REACTIONS (36)
  - BONE PAIN [None]
  - NEUTROPENIA [None]
  - ANHEDONIA [None]
  - TOOTH DISORDER [None]
  - BONE LESION [None]
  - HYPOTENSION [None]
  - MUCOSAL INFLAMMATION [None]
  - NEUROPATHY PERIPHERAL [None]
  - BONE DISORDER [None]
  - WEIGHT DECREASED [None]
  - COLONIC POLYP [None]
  - MYELOMA RECURRENCE [None]
  - OTITIS MEDIA [None]
  - INJURY [None]
  - GINGIVAL PAIN [None]
  - CELLULITIS [None]
  - RENAL TUBULAR ACIDOSIS [None]
  - EXTRASKELETAL OSSIFICATION [None]
  - ACIDOSIS HYPERCHLORAEMIC [None]
  - OSTEOMYELITIS [None]
  - OSTEONECROSIS OF JAW [None]
  - RECTAL HAEMORRHAGE [None]
  - INTERVERTEBRAL DISC PROTRUSION [None]
  - SPINAL OSTEOARTHRITIS [None]
  - THROMBOPHLEBITIS [None]
  - PAIN IN JAW [None]
  - ANXIETY [None]
  - JAW DISORDER [None]
  - ABSCESS JAW [None]
  - BONE SWELLING [None]
  - HYPERKALAEMIA [None]
  - PAIN [None]
  - SALIVARY GLAND ENLARGEMENT [None]
  - MASTICATION DISORDER [None]
  - RENAL FAILURE ACUTE [None]
  - OSTEOSCLEROSIS [None]
